FAERS Safety Report 25955352 (Version 1)
Quarter: 2025Q4

REPORT INFORMATION
  Report Type: Report from Study
  Country: EU (occurrence: EU)
  Receive Date: 20251024
  Receipt Date: 20251024
  Transmission Date: 20260118
  Serious: Yes (Hospitalization, Other)
  Sender: IPSEN BIOPHARMACEUTICALS, INC.
  Company Number: EU-EPIZYME, INC.-2022FREPZ64381090

PATIENT
  Age: 57 Year
  Sex: Male
  Weight: 83 kg

DRUGS (14)
  1. TAZVERIK [Suspect]
     Active Substance: TAZEMETOSTAT HYDROBROMIDE
     Indication: Adenocarcinoma pancreas
     Dosage: 800 MG?CUMULATED DOSE: 60800 MG
     Route: 048
     Dates: start: 20220822, end: 20221021
  2. DURVALUMAB [Suspect]
     Active Substance: DURVALUMAB
     Indication: Pancreatic carcinoma
     Dosage: 1120 MG
     Route: 042
     Dates: start: 20220912
  3. OXYCONTIN [Concomitant]
     Active Substance: OXYCODONE HYDROCHLORIDE
     Indication: Abdominal pain
     Dosage: 100 MG, EVERY 1DAY(S)
     Route: 048
  4. LYRICA [Concomitant]
     Active Substance: PREGABALIN
     Indication: Abdominal pain
     Dosage: 25 MG, EVERY 1DAY(S)
     Route: 048
  5. LANREOTIDE ACETATE [Concomitant]
     Active Substance: LANREOTIDE ACETATE
     Indication: Abdominal pain
     Dosage: UNK
     Route: 058
  6. METFORMIN HYDROCHLORIDE [Concomitant]
     Active Substance: METFORMIN HYDROCHLORIDE
     Indication: Diabetes mellitus
     Dosage: 500 MG,
     Route: 048
  7. XARELTO [Concomitant]
     Active Substance: RIVAROXABAN
     Indication: Venous thrombosis
     Dosage: UNK
  8. ESIDREX [Concomitant]
     Active Substance: HYDROCHLOROTHIAZIDE
     Indication: Hypertension
     Dosage: UNKOWN
     Route: 048
  9. RAMIPRIL [Concomitant]
     Active Substance: RAMIPRIL
     Indication: Hypertension
     Dosage: UNK
     Route: 048
  10. DIAMICRON [Concomitant]
     Indication: Diabetes mellitus
     Route: 048
  11. PENICILLIN V [Concomitant]
     Active Substance: PENICILLIN V
     Indication: Product used for unknown indication
     Route: 048
  12. GEMCITABINE [Concomitant]
     Active Substance: GEMCITABINE
  13. PACLITAXEL [Concomitant]
     Active Substance: PACLITAXEL
  14. FLUOROURACIL\IRINOTECAN\LEUCOVORIN\OXALIPLATIN [Concomitant]
     Active Substance: FLUOROURACIL\IRINOTECAN\LEUCOVORIN\OXALIPLATIN

REACTIONS (1)
  - Acute kidney injury [Recovered/Resolved]

NARRATIVE: CASE EVENT DATE: 20220926
